FAERS Safety Report 7178848-2 (Version None)
Quarter: 2010Q4

REPORT INFORMATION
  Report Type: 
  Country: None (occurrence: None)
  Receive Date: 20101221
  Receipt Date: 20101213
  Transmission Date: 20110411
  Serious: Yes (Hospitalization)
  Sender: FDA-Public Use
  Company Number: US-BRISTOL-MYERS SQUIBB COMPANY-15438831

PATIENT
  Age: 60 Year
  Sex: Female
  Weight: 86 kg

DRUGS (14)
  1. IXEMPRA KIT [Suspect]
     Indication: BREAST CANCER
     Route: 042
     Dates: start: 20101028, end: 20101209
  2. XANAX [Concomitant]
     Indication: ANXIETY
     Dates: start: 20061204
  3. BENAZEPRIL HCL + HCTZ [Concomitant]
     Indication: HYPERTENSION
     Dosage: 1DF:20MG/12.5MG
     Dates: start: 20101005
  4. LOVASTATIN [Concomitant]
     Indication: BLOOD CHOLESTEROL INCREASED
     Dates: start: 20060607
  5. LISINOPRIL [Concomitant]
     Indication: HYPERTENSION
     Dates: start: 20090327
  6. VITAMIN TAB [Concomitant]
     Dates: start: 20060126
  7. VICODIN [Concomitant]
     Indication: PAIN
     Dosage: Q6
     Dates: start: 20100809
  8. FOLIC ACID [Concomitant]
     Indication: ANAEMIA
     Dates: start: 20100811
  9. LASIX [Concomitant]
     Indication: FLUID RETENTION
     Dates: start: 20101124
  10. POTASSIUM CHLORIDE [Concomitant]
     Indication: PROPHYLAXIS
     Dates: start: 20101124
  11. FERROUS SULFATE [Concomitant]
     Indication: ANAEMIA
     Dates: start: 20101202
  12. NICOTINE [Concomitant]
     Indication: TOBACCO USER
     Dosage: PATCH,DAY
     Dates: start: 20100901
  13. COMPAZINE [Concomitant]
     Indication: NAUSEA
     Dosage: Q6
     Dates: start: 20100708
  14. VITAMIN B-12 [Concomitant]
     Indication: ANAEMIA
     Dosage: FOLATE ACID
     Dates: start: 20101029

REACTIONS (1)
  - PERICARDIAL EFFUSION [None]
